FAERS Safety Report 7517129-1 (Version None)
Quarter: 2011Q2

REPORT INFORMATION
  Report Type: 
  Country: None (occurrence: None)
  Receive Date: 20110601
  Receipt Date: 20110524
  Transmission Date: 20111010
  Serious: Yes (Other)
  Sender: FDA-Public Use
  Company Number: US-BAXTER-2011BH017768

PATIENT
  Sex: Female

DRUGS (2)
  1. CYCLOPHOSPHAMIDE [Suspect]
     Indication: ALVEOLITIS
     Route: 048
  2. CYCLOPHOSPHAMIDE [Suspect]
     Indication: SCLERODERMA
     Route: 048

REACTIONS (1)
  - VAGINAL CANCER [None]
